FAERS Safety Report 7733831-0 (Version None)
Quarter: 2011Q3

REPORT INFORMATION
  Report Type: 
  Country: None (occurrence: None)
  Receive Date: 20110907
  Receipt Date: 20110823
  Transmission Date: 20111222
  Serious: Yes (Other)
  Sender: FDA-Public Use
  Company Number: JP-JNJFOC-20110901247

PATIENT
  Sex: Male

DRUGS (1)
  1. TRAMADOL HYDROCHLORIDE/ACETAMINOPHEN [Suspect]
     Indication: TOOTHACHE
     Dosage: 2 DF 1 PER 1 DAY
     Route: 048

REACTIONS (5)
  - DEAFNESS [None]
  - DIZZINESS [None]
  - ADVERSE DRUG REACTION [None]
  - DYSPHONIA [None]
  - EAR DISCOMFORT [None]
